FAERS Safety Report 6252774-5 (Version None)
Quarter: 2009Q3

REPORT INFORMATION
  Report Type: 
  Country: None (occurrence: None)
  Receive Date: 20090701
  Receipt Date: 20090622
  Transmission Date: 20100115
  Serious: Yes (Hospitalization, Other)
  Sender: FDA-Public Use
  Company Number: US-AMGEN-QUU352658

PATIENT
  Sex: Male

DRUGS (3)
  1. ENBREL [Suspect]
     Indication: RHEUMATOID ARTHRITIS
     Route: 058
  2. ENBREL [Suspect]
     Indication: SARCOIDOSIS
  3. HUMIRA [Concomitant]

REACTIONS (3)
  - RHEUMATOID ARTHRITIS [None]
  - VARICELLA [None]
  - VISUAL ACUITY REDUCED [None]
